FAERS Safety Report 18343132 (Version 4)
Quarter: 2020Q4

REPORT INFORMATION
  Report Type: Report from Study
  Country: US (occurrence: US)
  Receive Date: 20201005
  Receipt Date: 20201118
  Transmission Date: 20210113
  Serious: Yes (Hospitalization, Other)
  Sender: FDA-Public Use
  Company Number: US-HORIZON-RAV-0343-2020

PATIENT
  Age: 8 Year
  Sex: Male

DRUGS (8)
  1. INSULIN DRIP [Concomitant]
  2. POTASSIUM CHLORIDE. [Concomitant]
     Active Substance: POTASSIUM CHLORIDE
  3. CALCIUM GLUCONATE. [Concomitant]
     Active Substance: CALCIUM GLUCONATE
  4. RAVICTI [Suspect]
     Active Substance: GLYCEROL PHENYLBUTYRATE
     Indication: CARBAMOYL PHOSPHATE SYNTHETASE DEFICIENCY
     Dosage: 5ML TID REDUCED TO 3.5ML TID ; TIME INTERVAL:
  5. SODIUM BICARBONATE. [Concomitant]
     Active Substance: SODIUM BICARBONATE
  6. DEXMETOMIDINE [Concomitant]
  7. INTRALIPID [Concomitant]
     Active Substance: EGG PHOSPHOLIPIDS\GLYCERIN\SOYBEAN OIL
  8. MIDAZOLAM. [Concomitant]
     Active Substance: MIDAZOLAM

REACTIONS (14)
  - Blood lactic acid increased [Not Recovered/Not Resolved]
  - Illness [Recovering/Resolving]
  - Ammonia increased [Recovered/Resolved]
  - Blood copper decreased [Unknown]
  - Eye movement disorder [Unknown]
  - Malnutrition [Unknown]
  - Overdose [Recovered/Resolved]
  - Dehydration [Unknown]
  - Haematuria [Unknown]
  - Ceruloplasmin decreased [Unknown]
  - Amino acid level increased [Unknown]
  - Pancytopenia [Unknown]
  - Vitamin B6 deficiency [Unknown]
  - Vomiting [Unknown]

NARRATIVE: CASE EVENT DATE: 20200924
